FAERS Safety Report 9739213 (Version 3)
Quarter: 2014Q1

REPORT INFORMATION
  Report Type: Spontaneous
  Country: DE (occurrence: DE)
  Receive Date: 20131209
  Receipt Date: 20140310
  Transmission Date: 20141002
  Serious: Yes (Hospitalization, Other)
  Sender: FDA-Public Use
  Company Number: DE-JNJFOC-20131203666

PATIENT
  Age: 82 Year
  Sex: Female
  Weight: 82 kg

DRUGS (11)
  1. XARELTO [Suspect]
     Indication: CEREBROVASCULAR ACCIDENT PROPHYLAXIS
     Route: 048
     Dates: start: 20130118
  2. XARELTO [Suspect]
     Indication: ATRIAL FIBRILLATION
     Route: 048
     Dates: start: 20130118
  3. TOREM [Concomitant]
     Route: 065
  4. BETAHISTINE [Concomitant]
     Route: 065
  5. ALLOPURINOL [Concomitant]
     Route: 065
  6. AMLODIPINE [Concomitant]
     Route: 065
  7. BISOHEXAL (BISOPROLOL HEMIFUMARATE) [Concomitant]
     Route: 065
  8. DELIX [Concomitant]
     Route: 065
  9. OMEP [Concomitant]
     Route: 065
  10. SIMVAHEXAL [Concomitant]
     Route: 065
  11. ACTONEL [Concomitant]
     Route: 065

REACTIONS (1)
  - Deep vein thrombosis [Recovered/Resolved]
